FAERS Safety Report 5301852-3 (Version None)
Quarter: 2007Q1

REPORT INFORMATION
  Report Type: 
  Country: None (occurrence: None)
  Receive Date: 20070201
  Receipt Date: 20061212
  Transmission Date: 20070707
  Serious: No
  Sender: FDA-Public Use
  Company Number: 2006PV026844

PATIENT
  Age: 74 Year
  Sex: Female
  Weight: 56.6996 kg

DRUGS (4)
  1. BYETTA [Suspect]
     Indication: DIABETES MELLITUS NON-INSULIN-DEPENDENT
     Dosage: 10 MCG;BID;SC
     Route: 058
     Dates: start: 20060801, end: 20061201
  2. METFORMIN HCL [Concomitant]
  3. GLUCOVANCE [Concomitant]
  4. ACCUPRIL [Concomitant]

REACTIONS (5)
  - EYE SWELLING [None]
  - OEDEMA MOUTH [None]
  - PRURITUS GENERALISED [None]
  - SWELLING FACE [None]
  - WEIGHT DECREASED [None]
